FAERS Safety Report 6191056-7 (Version None)
Quarter: 2009Q2

REPORT INFORMATION
  Report Type: 
  Country: None (occurrence: None)
  Receive Date: 20090513
  Receipt Date: 20090428
  Transmission Date: 20091009
  Serious: Yes (Hospitalization, Other)
  Sender: FDA-Public Use
  Company Number: ADE# 09-188DPR

PATIENT
  Age: 87 Year
  Sex: Female

DRUGS (9)
  1. DIGOXIN [Suspect]
     Indication: ATRIAL FIBRILLATION
     Dosage: 2 EVERY MORNING; YEAR AGO
  2. CARTIA 240MG [Concomitant]
  3. DIGOXIN-TYPE MEDICATION BY ANOTHER MANUFACTURER 0.125MG [Concomitant]
  4. COUMADIN [Concomitant]
  5. TYLENOL [Concomitant]
  6. POTASSIUM CHLORIDE [Concomitant]
  7. VITAMIN E [Concomitant]
  8. LOVAZA [Concomitant]
  9. CALCIUM [Concomitant]

REACTIONS (14)
  - AMNESIA [None]
  - ARTHRALGIA [None]
  - BLOOD GLUCOSE INCREASED [None]
  - DEMENTIA [None]
  - DEPRESSION [None]
  - FALL [None]
  - FATIGUE [None]
  - FEELING ABNORMAL [None]
  - INSOMNIA [None]
  - LISTLESS [None]
  - MONONUCLEOSIS SYNDROME [None]
  - OSTEOPOROSIS [None]
  - VAGINAL HAEMORRHAGE [None]
  - WHEEZING [None]
